FAERS Safety Report 24652136 (Version 1)
Quarter: 2024Q4

REPORT INFORMATION
  Report Type: Spontaneous
  Country: US (occurrence: US)
  Receive Date: 20241122
  Receipt Date: 20241122
  Transmission Date: 20250115
  Serious: No
  Sender: ALVOGEN
  Company Number: US-ALVOGEN-2024092941

PATIENT
  Sex: Female

DRUGS (2)
  1. TERIPARATIDE [Suspect]
     Active Substance: TERIPARATIDE
     Indication: Product used for unknown indication
     Dosage: EXP DATE: OCT-2024?PERFORMED 12-13 INJECTIONS WITH FIRST PEN
  2. TERIPARATIDE [Suspect]
     Active Substance: TERIPARATIDE
     Indication: Product used for unknown indication
     Dosage: EXP DATE: SEP-2024?PERFORMED 2-3 INJECTIONS WITH 2ND INJECTION WHICH MALFUNCTIONED

REACTIONS (2)
  - Device malfunction [Unknown]
  - Device operational issue [Unknown]
